FAERS Safety Report 7761676 (Version 5)
Quarter: 2013Q1

REPORT INFORMATION
  Report Type: Report from Study
  Country: FR (occurrence: FR)
  Receive Date: 20110114
  Receipt Date: 20130214
  Transmission Date: 20140127
  Serious: Yes (Hospitalization, Other)
  Sender: FDA-Public Use
  Company Number: FR-ABBOTT-11P-056-0695188-00

PATIENT
  Age: 62 Year
  Sex: Female
  Weight: 81 kg

DRUGS (15)
  1. HUMIRA [Suspect]
     Indication: CROHN^S DISEASE
     Route: 058
     Dates: start: 20080623, end: 20110113
  2. NEURONTIN [Concomitant]
     Indication: NEUROPATHY PERIPHERAL
     Dates: start: 200311
  3. HEXAQUINE [Concomitant]
     Indication: MUSCLE SPASMS
     Dosage: 1 CP THREE TIMES DAILY
     Dates: start: 19950406
  4. LEVOTHYROX [Concomitant]
     Indication: HYPOTHYROIDISM
     Dates: start: 1984
  5. SPASFON [Concomitant]
     Indication: ABDOMINAL PAIN
     Dosage: 1 CP (SIX PER DAY)
     Dates: start: 20020211
  6. DIFFU K [Concomitant]
     Indication: HYPOKALAEMIA
     Dates: start: 200803, end: 20110114
  7. INIPOMP [Concomitant]
     Indication: GASTROOESOPHAGEAL REFLUX DISEASE
     Dates: start: 20090311
  8. MONO-TILDIEM [Concomitant]
     Indication: HYPERTENSION
     Dates: start: 20090311
  9. TERCIAN [Concomitant]
     Indication: ANXIETY
     Dates: start: 20090311
  10. ALPRAZOLAM [Concomitant]
     Indication: ANXIETY
     Dates: start: 20090311
  11. NOCTAMIDE [Concomitant]
     Indication: INSOMNIA
     Dates: start: 20090311
  12. ALDACTONE [Concomitant]
     Indication: HYPERALDOSTERONISM
  13. SPECIAFOLDINE [Concomitant]
     Indication: ANAEMIA PROPHYLAXIS
     Dosage: ONE PER WEEK AFTER METHOTREXATE
     Dates: start: 20091102, end: 20110114
  14. PYOSTACINE [Concomitant]
     Indication: HERPES ZOSTER
     Dates: start: 201009, end: 201009
  15. METHOJECT [Concomitant]
     Indication: CROHN^S DISEASE
     Dates: start: 20091102, end: 20110114

REACTIONS (1)
  - Anal cancer [Recovered/Resolved]
